FAERS Safety Report 20152963 (Version 2)
Quarter: 2022Q1

REPORT INFORMATION
  Report Type: Report from Study
  Country: US (occurrence: US)
  Receive Date: 20211206
  Receipt Date: 20220110
  Transmission Date: 20220423
  Serious: Yes (Hospitalization, Other)
  Sender: FDA-Public Use
  Company Number: US-SHIRE-US201712981

PATIENT
  Age: 58 Year
  Sex: Female
  Weight: 51.701 kg

DRUGS (48)
  1. TEDUGLUTIDE [Suspect]
     Active Substance: TEDUGLUTIDE
     Indication: Short-bowel syndrome
     Dosage: 0.05 MILLIGRAM/KILOGRAM
     Route: 058
     Dates: start: 20160427, end: 201605
  2. TEDUGLUTIDE [Suspect]
     Active Substance: TEDUGLUTIDE
     Indication: Short-bowel syndrome
     Dosage: 0.05 MILLIGRAM/KILOGRAM
     Route: 058
     Dates: start: 20160427, end: 201605
  3. TEDUGLUTIDE [Suspect]
     Active Substance: TEDUGLUTIDE
     Indication: Short-bowel syndrome
     Dosage: 0.05 MILLIGRAM/KILOGRAM
     Route: 058
     Dates: start: 20160427, end: 201605
  4. TEDUGLUTIDE [Suspect]
     Active Substance: TEDUGLUTIDE
     Indication: Short-bowel syndrome
     Dosage: 0.05 MILLIGRAM/KILOGRAM
     Route: 058
     Dates: start: 20160427, end: 201605
  5. TEDUGLUTIDE [Suspect]
     Active Substance: TEDUGLUTIDE
     Dosage: 0.05 MILLIGRAM/KILOGRAM
     Route: 058
     Dates: start: 20160602, end: 20160607
  6. TEDUGLUTIDE [Suspect]
     Active Substance: TEDUGLUTIDE
     Dosage: 0.05 MILLIGRAM/KILOGRAM
     Route: 058
     Dates: start: 20160602, end: 20160607
  7. TEDUGLUTIDE [Suspect]
     Active Substance: TEDUGLUTIDE
     Dosage: 0.05 MILLIGRAM/KILOGRAM
     Route: 058
     Dates: start: 20160602, end: 20160607
  8. TEDUGLUTIDE [Suspect]
     Active Substance: TEDUGLUTIDE
     Dosage: 0.05 MILLIGRAM/KILOGRAM
     Route: 058
     Dates: start: 20160602, end: 20160607
  9. TEDUGLUTIDE [Suspect]
     Active Substance: TEDUGLUTIDE
     Dosage: 0.02 MILLIGRAM/KILOGRAM
     Route: 065
     Dates: start: 20160602, end: 20160620
  10. TEDUGLUTIDE [Suspect]
     Active Substance: TEDUGLUTIDE
     Dosage: 0.02 MILLIGRAM/KILOGRAM
     Route: 065
     Dates: start: 20160602, end: 20160620
  11. TEDUGLUTIDE [Suspect]
     Active Substance: TEDUGLUTIDE
     Dosage: 0.02 MILLIGRAM/KILOGRAM
     Route: 065
     Dates: start: 20160602, end: 20160620
  12. TEDUGLUTIDE [Suspect]
     Active Substance: TEDUGLUTIDE
     Dosage: 0.02 MILLIGRAM/KILOGRAM
     Route: 065
     Dates: start: 20160602, end: 20160620
  13. IRON [Concomitant]
     Active Substance: IRON
     Indication: Blood iron decreased
     Dosage: 1.0 DF, 1X/DAY:QD
     Route: 048
     Dates: start: 201608
  14. RIFAXIMIN [Concomitant]
     Active Substance: RIFAXIMIN
     Indication: Short-bowel syndrome
     Dosage: 550.0 MG, 2X/DAY:BID
     Route: 048
     Dates: start: 20160602
  15. PROMETHAZINE [Concomitant]
     Active Substance: PROMETHAZINE HYDROCHLORIDE
     Indication: Nausea
     Dosage: 25.0 MG, OTHER (NOT REPORTED)
     Route: 048
     Dates: start: 20160602
  16. OCTREOTIDE [Concomitant]
     Active Substance: OCTREOTIDE
     Indication: Short-bowel syndrome
     Dosage: 20.0 MG, OTHER (NOT REPORTED)
     Route: 030
     Dates: start: 20170608
  17. CHOLESTYRAMINE [Concomitant]
     Active Substance: CHOLESTYRAMINE
     Indication: Blood cholesterol increased
     Dosage: 4.0 G, 1X/DAY:QD
     Route: 048
     Dates: start: 20170427
  18. LIDOCAINE [Concomitant]
     Active Substance: LIDOCAINE
     Indication: Short-bowel syndrome
     Dosage: 1.0 DF, AS REQ^D (PRN)
     Route: 061
     Dates: start: 20161216
  19. HYDROCORTISONE [Concomitant]
     Active Substance: HYDROCORTISONE
     Indication: Short-bowel syndrome
     Dosage: 1.0 DF, AS REQ^D (PRN)
     Route: 061
     Dates: start: 20161216
  20. CYANOCOBALAMIN [Concomitant]
     Active Substance: CYANOCOBALAMIN
     Indication: Anaemia vitamin B12 deficiency
     Dosage: 1000 MICROGRAM, Q4WEEKS
     Route: 065
  21. DICYCLOMINE [Concomitant]
     Active Substance: DICYCLOMINE HYDROCHLORIDE
     Indication: Frequent bowel movements
     Dosage: 20 MILLIGRAM, QID
     Route: 065
  22. ATROPINE\DIPHENOXYLATE [Concomitant]
     Active Substance: ATROPINE\DIPHENOXYLATE
     Indication: Diarrhoea
     Dosage: 2.5 MILLIGRAM, QID
     Route: 065
  23. FERROUS SULFATE [Concomitant]
     Active Substance: FERROUS SULFATE
     Indication: Iron deficiency
     Dosage: 325 MILLIGRAM, QD
     Route: 065
  24. LISINOPRIL [Concomitant]
     Active Substance: LISINOPRIL
     Indication: Hypertension
     Dosage: 20 MILLIGRAM, QD
     Route: 065
  25. MORPHINE [Concomitant]
     Active Substance: MORPHINE
     Indication: Pain
     Dosage: 30 MILLIGRAM, TID
     Route: 065
     Dates: start: 20170502, end: 20170502
  26. ONDANSETRON [Concomitant]
     Active Substance: ONDANSETRON
     Indication: Nausea
     Dosage: 8 MILLIGRAM, TID
     Route: 065
  27. ONDANSETRON [Concomitant]
     Active Substance: ONDANSETRON
     Indication: Vomiting
  28. POTASSIUM CHLORIDE [Concomitant]
     Active Substance: POTASSIUM CHLORIDE
     Indication: Blood potassium decreased
     Dosage: 20 MILLIEQUIVALENT, Q3WEEKS
     Route: 065
  29. POTASSIUM CHLORIDE [Concomitant]
     Active Substance: POTASSIUM CHLORIDE
     Indication: Nutritional supplementation
     Dosage: 20 MILLIEQUIVALENT, Q2HR
     Route: 065
     Dates: start: 20170501, end: 20170501
  30. PRIMIDONE [Concomitant]
     Active Substance: PRIMIDONE
     Indication: Essential tremor
     Dosage: 250 MILLIGRAM, BID
     Route: 065
  31. TIZANIDINE [Concomitant]
     Active Substance: TIZANIDINE
     Indication: Pain
     Dosage: 2 MILLIGRAM, TID
     Route: 065
  32. TRAZODONE HCL [Concomitant]
     Active Substance: TRAZODONE HYDROCHLORIDE
     Indication: Insomnia
     Dosage: 200 MILLIGRAM, QD
     Route: 065
  33. VENLAFAXINE [Concomitant]
     Active Substance: VENLAFAXINE HYDROCHLORIDE
     Indication: Depression
     Dosage: 150 MILLIGRAM, QD
     Route: 065
  34. CAFFEINE [Concomitant]
     Active Substance: CAFFEINE
     Indication: Fatigue
     Dosage: 200 MILLIGRAM, Q8HR
     Route: 065
     Dates: start: 20170430, end: 20170502
  35. ACETAMINOPHEN [Concomitant]
     Active Substance: ACETAMINOPHEN
     Indication: Pain
     Dosage: 1000 MILLIGRAM, QD
     Route: 065
     Dates: start: 20170420, end: 20170430
  36. LORAZEPAM [Concomitant]
     Active Substance: LORAZEPAM
     Indication: Anxiety
     Dosage: 1 MILLIGRAM, QID
     Route: 065
     Dates: start: 20170427, end: 20170502
  37. PROMETHAZINE [Concomitant]
     Active Substance: PROMETHAZINE HYDROCHLORIDE
     Indication: Nausea
     Dosage: 6.25 MILLIGRAM, QID
     Route: 065
  38. KETOROLAC [Concomitant]
     Active Substance: KETOROLAC TROMETHAMINE
     Indication: Headache
     Dosage: 15 MILLIGRAM, QD
     Route: 065
     Dates: start: 20170429, end: 20170429
  39. PHENOL [Concomitant]
     Active Substance: PHENOL
     Indication: Throat irritation
     Dosage: 1.4 PERCENT, PRN
     Route: 065
     Dates: start: 20170429, end: 20170502
  40. SMOFLIPID [Concomitant]
     Active Substance: FISH OIL\MEDIUM-CHAIN TRIGLYCERIDES\OLIVE OIL\SOYBEAN OIL
     Indication: Nutritional supplementation
     Dosage: 20 PERCENT
     Route: 065
     Dates: start: 20170428, end: 20170502
  41. DEXTROSE [Concomitant]
     Active Substance: DEXTROSE
     Indication: Nutritional supplementation
     Dosage: 5 PERCENT
     Route: 065
     Dates: start: 20170427, end: 20170429
  42. MAGNESIUM SULFATE ANHYDROUS [Concomitant]
     Active Substance: MAGNESIUM SULFATE ANHYDROUS
     Indication: Hypomagnesaemia
     Dosage: 2 GRAM, QD
     Route: 065
     Dates: start: 20170428, end: 20170429
  43. PANTOPRAZOLE [Concomitant]
     Active Substance: PANTOPRAZOLE
     Indication: Gastrointestinal disorder prophylaxis
     Dosage: 40 MILLIGRAM, QD
     Route: 065
     Dates: start: 20170428, end: 20170502
  44. LIDOCAINE [Concomitant]
     Active Substance: LIDOCAINE
     Indication: Pain
     Dosage: 4 PERCENT, QD
     Dates: start: 20170427, end: 20170427
  45. VENLAFAXINE HCL [Concomitant]
     Active Substance: VENLAFAXINE HYDROCHLORIDE
     Indication: Depression
     Dosage: 150 MILLIGRAM, QD
     Route: 065
     Dates: start: 20170428, end: 20170502
  46. HEPARIN [Concomitant]
     Active Substance: HEPARIN SODIUM
     Indication: Thrombosis prophylaxis
     Dosage: 5000 INTERNATIONAL UNIT, TID
     Route: 065
     Dates: start: 20170427, end: 20170502
  47. HYDROMORPHONE [Concomitant]
     Active Substance: HYDROMORPHONE
     Indication: Pain
     Dosage: 0.2 MILLIGRAM, PRN
     Route: 065
     Dates: start: 20170427, end: 20170502
  48. HYDROMORPHONE [Concomitant]
     Active Substance: HYDROMORPHONE
     Dosage: 0.4 MILLIGRAM, PRN
     Route: 065
     Dates: start: 20170427, end: 20170502

REACTIONS (2)
  - Small intestinal obstruction [Recovered/Resolved]
  - Anal cancer [Recovered/Resolved]

NARRATIVE: CASE EVENT DATE: 20161031
